FAERS Safety Report 4563388-7 (Version None)
Quarter: 2005Q1

REPORT INFORMATION
  Report Type: 
  Country: None (occurrence: None)
  Receive Date: 20050128
  Receipt Date: 20040324
  Transmission Date: 20050727
  Serious: No
  Sender: FDA-Public Use
  Company Number: US-GLAXOSMITHKLINE-A0504323A

PATIENT
  Sex: Female

DRUGS (8)
  1. WELLBUTRIN [Suspect]
     Indication: DEPRESSION
     Dosage: 150MG THREE TIMES PER DAY
     Route: 048
  2. WELLBUTRIN XL [Suspect]
     Indication: DEPRESSION
     Route: 048
     Dates: start: 20040101
  3. ZOCOR [Concomitant]
  4. KLONOPIN [Concomitant]
  5. RISPERDAL [Concomitant]
  6. DITROPAN XL [Concomitant]
  7. ULTRAM [Concomitant]
  8. TRAZODONE HCL [Concomitant]

REACTIONS (1)
  - DIARRHOEA [None]
